FAERS Safety Report 24061831 (Version 2)
Quarter: 2024Q3

REPORT INFORMATION
  Report Type: Spontaneous
  Country: IL (occurrence: IL)
  Receive Date: 20240708
  Receipt Date: 20240722
  Transmission Date: 20241017
  Serious: Yes (Other)
  Sender: NOVARTIS
  Company Number: IL-002147023-NVSC2024IL138216

PATIENT
  Age: 69 Year
  Sex: Male

DRUGS (3)
  1. SANDOSTATIN LAR DEPOT [Suspect]
     Active Substance: OCTREOTIDE ACETATE
     Indication: Acromegaly
     Dosage: UNK, Q4W (INTRAGLUTEAL)
     Route: 065
  2. SANDOSTATIN LAR DEPOT [Suspect]
     Active Substance: OCTREOTIDE ACETATE
  3. SANDOSTATIN LAR DEPOT [Suspect]
     Active Substance: OCTREOTIDE ACETATE

REACTIONS (9)
  - Nephrolithiasis [Unknown]
  - Blood growth hormone increased [Unknown]
  - Skin lesion [Unknown]
  - Skin discolouration [Unknown]
  - Mood altered [Unknown]
  - Feeling abnormal [Unknown]
  - Decreased appetite [Unknown]
  - Injection site pain [Unknown]
  - Fatigue [Unknown]
